FAERS Safety Report 24606619 (Version 1)
Quarter: 2024Q4

REPORT INFORMATION
  Report Type: Other
  Country: US (occurrence: US)
  Receive Date: 20241112
  Receipt Date: 20241112
  Transmission Date: 20250115
  Serious: Yes (Hospitalization)
  Sender: KNIGHT THERAPEUTICS
  Company Number: US-Knight Therapeutics (USA) Inc.-2164862

PATIENT
  Age: 50 Year
  Sex: Male

DRUGS (4)
  1. IMPAVIDO [Suspect]
     Active Substance: MILTEFOSINE
     Indication: Mucocutaneous leishmaniasis
  2. DOXYCYCLINE [Concomitant]
     Active Substance: DOXYCYCLINE
  3. LEVOFLOXACIN [Concomitant]
     Active Substance: LEVOFLOXACIN
  4. CLINDAMYCIN [Concomitant]
     Active Substance: CLINDAMYCIN

REACTIONS (2)
  - Rash [Recovered/Resolved]
  - Drug ineffective [Recovered/Resolved]
